FAERS Safety Report 25953449 (Version 1)
Quarter: 2025Q4

REPORT INFORMATION
  Report Type: Spontaneous
  Country: US (occurrence: None)
  Receive Date: 20251023
  Receipt Date: 20251023
  Transmission Date: 20260118
  Serious: Yes (Other)
  Sender: FDA-CTU
  Company Number: None

PATIENT
  Age: 33 Year
  Sex: Male
  Weight: 92.4 kg

DRUGS (7)
  1. PALIPERIDONE [Suspect]
     Active Substance: PALIPERIDONE
     Indication: Bipolar disorder
     Dosage: FREQUENCY : AT BEDTIME;?
     Route: 048
     Dates: start: 20250731, end: 20250801
  2. Olanzapine 5 mg IM daily at HS PRN IM backup [Concomitant]
  3. DULOXETINE [Suspect]
     Active Substance: DULOXETINE
  4. TRAZODONE [Suspect]
     Active Substance: TRAZODONE HYDROCHLORIDE
  5. haloperidol 3mg po QHS [Concomitant]
     Dates: start: 20250801
  6. AMLODIPINE [Suspect]
     Active Substance: AMLODIPINE BESYLATE
  7. CHOLECALCIFEROL [Suspect]
     Active Substance: CHOLECALCIFEROL

REACTIONS (6)
  - Anxiety [None]
  - Patient uncooperative [None]
  - Suicidal behaviour [None]
  - Refusal of treatment by patient [None]
  - Therapy cessation [None]
  - Suicidal ideation [None]

NARRATIVE: CASE EVENT DATE: 20250801
